FAERS Safety Report 7646641 (Version 4)
Quarter: 2013Q4

REPORT INFORMATION
  Report Type: Spontaneous
  Country: US (occurrence: US)
  Receive Date: 20101029
  Receipt Date: 20131205
  Transmission Date: 20140711
  Serious: Yes (Life-Threatening, Hospitalization)
  Sender: FDA-Public Use
  Company Number: US-BAYER-201037968NA

PATIENT
  Age: 15 Year
  Sex: Female
  Weight: 68 kg

DRUGS (12)
  1. YASMIN [Suspect]
     Indication: MENSTRUATION IRREGULAR
     Dosage: UNK UNK, UNK
     Route: 048
     Dates: start: 20031004, end: 20080915
  2. OCELLA [Suspect]
     Indication: MENSTRUATION IRREGULAR
     Route: 048
     Dates: start: 200809
  3. PRILOSEC [Concomitant]
  4. SINGULAIR [Concomitant]
  5. ZYRTEC [CETIRIZINE HYDROCHLORIDE] [Concomitant]
  6. GLUCOPHAGE [Concomitant]
  7. MIRALAX [Concomitant]
  8. LUVOX [Concomitant]
  9. ENALAPRIL [Concomitant]
  10. IBUPROFEN [Concomitant]
  11. SYNTHROID [Concomitant]
  12. OMNICEF [Concomitant]

REACTIONS (5)
  - Cholelithiasis [Recovering/Resolving]
  - Injury [Unknown]
  - Vomiting [Recovering/Resolving]
  - Gastric disorder [Unknown]
  - Abdominal discomfort [Unknown]
